FAERS Safety Report 9791447 (Version 4)
Quarter: 2014Q2

REPORT INFORMATION
  Report Type: Report from Study
  Country: BR (occurrence: BR)
  Receive Date: 20140101
  Receipt Date: 20140526
  Transmission Date: 20141212
  Serious: Yes (Hospitalization)
  Sender: FDA-Public Use
  Company Number: PHHY2013BR152974

PATIENT
  Age: 54 Year
  Sex: Male
  Weight: 57 kg

DRUGS (8)
  1. SANDOSTATIN LAR [Suspect]
     Indication: ACROMEGALY
     Dosage: 30 MG, EVERY 28 DAYS
     Route: 030
     Dates: start: 2007
  2. SANDOSTATIN LAR [Suspect]
     Indication: BRAIN NEOPLASM
     Dosage: 20 MG
     Dates: start: 200712, end: 2009
  3. SANDOSTATIN LAR [Suspect]
     Dosage: 30 MG, ONE APPLICATION A MONTH
     Dates: start: 2009
  4. SANDOSTATIN LAR [Suspect]
     Dosage: 30 MG, EVERY 28 DAYS
     Route: 030
     Dates: start: 20131205
  5. DOSTINEX [Suspect]
     Indication: BRAIN NEOPLASM
     Dosage: 5 MG, FIVE TIMES A WEEK
     Dates: start: 2010, end: 20131217
  6. METFORMIN [Concomitant]
     Dosage: UNK UKN, UNK
  7. PREDNISONA [Concomitant]
     Dosage: 5 MG, UNK
     Dates: start: 20131217
  8. CABERGOLINE [Concomitant]
     Indication: BRAIN NEOPLASM
     Dosage: 1 DF, A DAY

REACTIONS (2)
  - Weight decreased [Recovered/Resolved]
  - Pituitary tumour recurrent [Unknown]
